FAERS Safety Report 5095156-4 (Version None)
Quarter: 2006Q3

REPORT INFORMATION
  Report Type: 
  Country: None (occurrence: None)
  Receive Date: 20060901
  Receipt Date: 20060526
  Transmission Date: 20061208
  Serious: Yes (Other)
  Sender: FDA-Public Use
  Company Number: 2006AP02428

PATIENT
  Age: 75 Year
  Sex: Male

DRUGS (7)
  1. CASODEX [Suspect]
     Indication: PROSTATE CANCER STAGE III
     Route: 048
     Dates: start: 20050421, end: 20060523
  2. CASODEX [Suspect]
     Route: 048
     Dates: start: 20060801
  3. ZOLADEX [Suspect]
     Indication: PROSTATE CANCER STAGE III
     Dosage: NEXT SCHEDULED DOSE AUGUST 2006
     Route: 058
     Dates: start: 20041110
  4. ZOLADEX [Suspect]
     Route: 058
     Dates: start: 20060801
  5. LIPITOR [Suspect]
     Route: 048
     Dates: start: 20050513, end: 20060523
  6. BUP-4 [Suspect]
     Route: 048
     Dates: start: 20050616, end: 20060523
  7. CASODEX [Concomitant]
     Route: 048
     Dates: start: 20041110, end: 20041216

REACTIONS (1)
  - PLATELET COUNT DECREASED [None]
